FAERS Safety Report 18017315 (Version 1)
Quarter: 2020Q3

REPORT INFORMATION
  Report Type: Other
  Country: ES (occurrence: ES)
  Receive Date: 20200713
  Receipt Date: 20200713
  Transmission Date: 20201103
  Serious: Yes (Death)
  Sender: FDA-Public Use
  Company Number: ES-B.BRAUN MEDICAL INC.-2087343

PATIENT
  Age: 61 Year
  Sex: Female

DRUGS (8)
  1. PENICILLIN G [Concomitant]
     Active Substance: PENICILLIN G
  2. IMIPENEM?CILASTATIN [Concomitant]
     Active Substance: CILASTATIN SODIUM\IMIPENEM
  3. PHENOXIMETILPENICILLIN [Concomitant]
  4. MEROPENEM FOR INJECTION USP AND SODIUM CHLORIDE INJECTION USP IN THE [Suspect]
     Active Substance: MEROPENEM\SODIUM CHLORIDE
  5. CEFTRIAXONE. [Concomitant]
     Active Substance: CEFTRIAXONE
  6. AMOXICILLIN. [Concomitant]
     Active Substance: AMOXICILLIN
  7. AMIKACIN SULFATE. [Concomitant]
     Active Substance: AMIKACIN SULFATE
  8. CEFUROXIME. [Concomitant]
     Active Substance: CEFUROXIME

REACTIONS (3)
  - Rash erythematous [Recovered/Resolved]
  - Skin exfoliation [Recovered/Resolved]
  - Type IV hypersensitivity reaction [Recovered/Resolved]
